FAERS Safety Report 9104934 (Version 1)
Quarter: 2013Q1

REPORT INFORMATION
  Report Type: Spontaneous
  Country: CA (occurrence: CA)
  Receive Date: 20130220
  Receipt Date: 20130220
  Transmission Date: 20140127
  Serious: Yes (Other)
  Sender: FDA-Public Use
  Company Number: CA-PFIZER INC-2013062454

PATIENT
  Age: 56 Year
  Sex: Female
  Weight: 77 kg

DRUGS (1)
  1. LYRICA [Suspect]
     Indication: SURGERY
     Dosage: UNK

REACTIONS (8)
  - Abasia [Unknown]
  - Pain in extremity [Unknown]
  - Local swelling [Unknown]
  - Rash [Unknown]
  - Fear [Unknown]
  - Weight increased [Unknown]
  - Somnolence [Unknown]
  - Malaise [Unknown]
